FAERS Safety Report 8955452 (Version 2)
Quarter: 2015Q2

REPORT INFORMATION
  Report Type: Report from Study
  Country: FR (occurrence: FR)
  Receive Date: 20121207
  Receipt Date: 20150603
  Transmission Date: 20150821
  Serious: Yes (Death, Hospitalization)
  Sender: FDA-Public Use
  Company Number: FR-ROCHE-1165250

PATIENT
  Age: 51 Year
  Sex: Female

DRUGS (20)
  1. MOPRAL [Concomitant]
     Active Substance: OMEPRAZOLE SODIUM
  2. CACIT D3 [Concomitant]
     Active Substance: CALCIUM\CHOLECALCIFEROL
  3. STEROGYL (FRANCE) [Concomitant]
  4. OXEOL [Concomitant]
  5. LASILIX [Concomitant]
     Active Substance: FUROSEMIDE
  6. ACTISKENAN [Concomitant]
     Active Substance: MORPHINE SULFATE
  7. THIOCOLCHICOSIDE [Concomitant]
     Active Substance: THIOCOLCHICOSIDE
  8. RITUXIMAB [Suspect]
     Active Substance: RITUXIMAB
     Indication: RHEUMATOID ARTHRITIS
     Dosage: SUBSEQUENT INFUSIONS ON 27/NOV/2006 (D15), 25/JUN/2007 (D1), 09-JUL-2007 (D15), 23/JUN/2008 (D1), 09
     Route: 042
     Dates: start: 20061113, end: 20080709
  9. METHOTREXATE [Concomitant]
     Active Substance: METHOTREXATE
     Dosage: 15MG/W, 7.5MG/W, 10 MG/W,
     Route: 065
  10. BETAHISTINE [Concomitant]
     Active Substance: BETAHISTINE
  11. SIMVASTATINE [Concomitant]
     Active Substance: SIMVASTATIN
  12. EQUANIL [Concomitant]
     Active Substance: MEPROBAMATE
  13. COVERSYL [Concomitant]
     Active Substance: PERINDOPRIL
  14. SPASFON (FRANCE) [Concomitant]
     Active Substance: PHLOROGLUCINOL
  15. MEDIATENSYL [Concomitant]
     Active Substance: URAPIDIL
  16. HEXAQUINE [Concomitant]
     Active Substance: NIAOULI OIL\QUININE BENZOATE\THIAMINE HYDROCHLORIDE
  17. PNEUMOREL [Concomitant]
     Active Substance: FENSPIRIDE HYDROCHLORIDE
  18. SKENAN [Concomitant]
     Active Substance: MORPHINE SULFATE
  19. PARACETAMOL [Concomitant]
     Active Substance: ACETAMINOPHEN
  20. DOMPERIDONE [Concomitant]
     Active Substance: DOMPERIDONE

REACTIONS (12)
  - Urinary tract infection [Recovered/Resolved]
  - Skin ulcer [Not Recovered/Not Resolved]
  - Osteoporosis [Unknown]
  - Hypogammaglobulinaemia [Unknown]
  - Wound [Unknown]
  - Myocardial infarction [Fatal]
  - Skin infection [Unknown]
  - Pelvic fracture [Recovered/Resolved]
  - Lung infection [Recovered/Resolved]
  - Arthritis infective [Unknown]
  - Renal colic [Recovered/Resolved]
  - Erythema [Not Recovered/Not Resolved]

NARRATIVE: CASE EVENT DATE: 200708
